FAERS Safety Report 23354843 (Version 3)
Quarter: 2024Q2

REPORT INFORMATION
  Report Type: Spontaneous
  Country: US (occurrence: US)
  Receive Date: 20240101
  Receipt Date: 20240515
  Transmission Date: 20240715
  Serious: No
  Sender: FDA-Public Use
  Company Number: US-BoehringerIngelheim-2023-BI-280355

PATIENT
  Age: 66 Year
  Sex: Female

DRUGS (4)
  1. STIOLTO RESPIMAT [Suspect]
     Active Substance: OLODATEROL HYDROCHLORIDE\TIOTROPIUM BROMIDE MONOHYDRATE
     Indication: Chronic obstructive pulmonary disease
     Dosage: 1 SPRAY (INHALATION SPRAY)
     Dates: start: 202311
  2. STIOLTO RESPIMAT [Suspect]
     Active Substance: OLODATEROL HYDROCHLORIDE\TIOTROPIUM BROMIDE MONOHYDRATE
     Dosage: 1 SPRAY EVERY 3RD DAY
     Dates: start: 20231129
  3. SPIRIVA RESPIMAT [Suspect]
     Active Substance: TIOTROPIUM BROMIDE
     Indication: Chronic obstructive pulmonary disease
     Dosage: ONE PUFF DAILY, INHALATION SPRAY
     Dates: start: 2023
  4. IBUPROFEN [Concomitant]
     Active Substance: IBUPROFEN
     Indication: Migraine

REACTIONS (4)
  - Migraine with aura [Not Recovered/Not Resolved]
  - Migraine [Not Recovered/Not Resolved]
  - Motion sickness [Not Recovered/Not Resolved]
  - Pain [Unknown]

NARRATIVE: CASE EVENT DATE: 20230101
